FAERS Safety Report 6571766-X (Version None)
Quarter: 2010Q1

REPORT INFORMATION
  Report Type: 
  Country: None (occurrence: None)
  Receive Date: 20100205
  Receipt Date: 20100126
  Transmission Date: 20100710
  Serious: Yes (Other)
  Sender: FDA-Public Use
  Company Number: CA-JNJFOC-20100111649

PATIENT
  Sex: Female
  Weight: 60 kg

DRUGS (7)
  1. REMICADE [Suspect]
     Indication: RHEUMATOID ARTHRITIS
     Route: 042
  2. REMICADE [Suspect]
     Route: 042
  3. METHOTREXATE [Concomitant]
     Route: 048
  4. HYDROXYCHLOROQUINE SULFATE [Concomitant]
     Dosage: 1 TABLET EVERY OTHER DAY
  5. PREDNISONE [Concomitant]
     Dosage: DECREASING DOSES
  6. FLOVENT [Concomitant]
     Dosage: PUFFS TWICE DAILY
  7. VENTOLIN [Concomitant]
     Dosage: PUFFS TWICE DAILY

REACTIONS (1)
  - ASTHMA [None]
